FAERS Safety Report 8884683 (Version 3)
Quarter: 2013Q3

REPORT INFORMATION
  Report Type: Spontaneous
  Country: US (occurrence: US)
  Receive Date: 20121102
  Receipt Date: 20130715
  Transmission Date: 20140515
  Serious: No
  Sender: FDA-Public Use
  Company Number: US-ASTRAZENECA-2012SE79627

PATIENT
  Age: 45 Year
  Sex: Male

DRUGS (5)
  1. NEXIUM [Suspect]
     Route: 048
  2. NEXIUM [Suspect]
     Route: 048
     Dates: start: 201302
  3. NEXIUM [Suspect]
     Route: 048
     Dates: start: 201306
  4. MORPHINE [Concomitant]
     Indication: BACK PAIN
  5. VALIUM [Concomitant]
     Indication: BACK PAIN

REACTIONS (5)
  - Gastrooesophageal reflux disease [Unknown]
  - Back pain [Unknown]
  - Sleep disorder due to general medical condition, insomnia type [Unknown]
  - Drug ineffective [Unknown]
  - Off label use [Unknown]
